FAERS Safety Report 14795224 (Version 6)
Quarter: 2018Q3

REPORT INFORMATION
  Report Type: Report from Study
  Country: US (occurrence: US)
  Receive Date: 20180423
  Receipt Date: 20180921
  Transmission Date: 20181010
  Serious: Yes (Hospitalization)
  Sender: FDA-Public Use
  Company Number: US-ACTELION-A-NJ2018-170790

PATIENT
  Age: 63 Year
  Sex: Female

DRUGS (17)
  1. NORVASC [Concomitant]
     Active Substance: AMLODIPINE BESYLATE
     Dosage: 10 MG, QD
     Route: 048
  2. NEXIUM [Concomitant]
     Active Substance: ESOMEPRAZOLE MAGNESIUM
     Dosage: 40 MG, BID
     Route: 048
  3. TRACLEER [Suspect]
     Active Substance: BOSENTAN
     Dosage: 125 MG, BID
     Route: 048
     Dates: start: 2018
  4. XANAX [Concomitant]
     Active Substance: ALPRAZOLAM
     Dosage: 0.5 MG, NIGHTLY PRN
     Route: 048
  5. PHOSLO [Concomitant]
     Active Substance: CALCIUM ACETATE
     Dosage: 667 MG, BID
     Route: 048
  6. POTASSIUM CHLORIDE. [Concomitant]
     Active Substance: POTASSIUM CHLORIDE
     Dosage: 20 MEQ, QD
     Route: 048
  7. REVATIO [Concomitant]
     Active Substance: SILDENAFIL CITRATE
     Dosage: 20 MG, TID
  8. REVATIO [Concomitant]
     Active Substance: SILDENAFIL CITRATE
     Dosage: 10 MG, TID
  9. METOLAZONE. [Concomitant]
     Active Substance: METOLAZONE
  10. DEMADEX [Concomitant]
     Active Substance: TORSEMIDE
     Dosage: 160 MG, BID
  11. SODIUM BICARBONATE. [Concomitant]
     Active Substance: SODIUM BICARBONATE
     Dosage: 650 MG, BID
     Route: 048
  12. DEMADEX [Concomitant]
     Active Substance: TORSEMIDE
     Dosage: 40 MG, BID
     Route: 048
  13. DEMADEX [Concomitant]
     Active Substance: TORSEMIDE
     Dosage: 160MG AND 80MG ON ALTERNATING DAYS
  14. TRACLEER [Suspect]
     Active Substance: BOSENTAN
     Indication: PULMONARY HYPERTENSION
     Dosage: 62.5 MG, BID
     Route: 048
     Dates: start: 201803
  15. TRACLEER [Suspect]
     Active Substance: BOSENTAN
     Dosage: 125 MG, BID
     Route: 048
     Dates: start: 201712
  16. TORSEMIDE. [Concomitant]
     Active Substance: TORSEMIDE
     Dosage: 160 MG, QD
  17. ZYLOPRIM [Concomitant]
     Active Substance: ALLOPURINOL
     Dosage: 100 MG, QD
     Route: 048

REACTIONS (39)
  - Post procedural complication [Unknown]
  - Haemoglobin decreased [Unknown]
  - Dyspnoea [Recovering/Resolving]
  - Renal hypertension [Unknown]
  - Pleural effusion [Unknown]
  - Asthenia [Unknown]
  - Fluid overload [Recovering/Resolving]
  - Ascites [Unknown]
  - Myalgia [Unknown]
  - Malaise [Unknown]
  - Renal impairment [Unknown]
  - Atypical haemolytic uraemic syndrome [Unknown]
  - Pulmonary oedema [Unknown]
  - Pancytopenia [Unknown]
  - Transfusion [Unknown]
  - Dyspnoea exertional [Unknown]
  - Pulmonary hypertension [Unknown]
  - Venous pressure jugular increased [Unknown]
  - Headache [Unknown]
  - Catheter management [Unknown]
  - Oedema [Unknown]
  - Platelet count decreased [Unknown]
  - Pericardial effusion [Unknown]
  - Cardiac failure congestive [Not Recovered/Not Resolved]
  - Joint contracture [Unknown]
  - Listeriosis [Unknown]
  - Acute kidney injury [Unknown]
  - Nausea [Unknown]
  - Musculoskeletal stiffness [Unknown]
  - Dehydration [Unknown]
  - Pyrexia [Unknown]
  - Chills [Unknown]
  - Dysuria [Unknown]
  - Cough [Unknown]
  - Back pain [Unknown]
  - Increased tendency to bruise [Unknown]
  - Diarrhoea [Unknown]
  - Listeria test positive [Unknown]
  - Chronic kidney disease [Unknown]

NARRATIVE: CASE EVENT DATE: 2018
